FAERS Safety Report 21465180 (Version 2)
Quarter: 2022Q4

REPORT INFORMATION
  Report Type: Spontaneous
  Country: FR (occurrence: FR)
  Receive Date: 20221017
  Receipt Date: 20221017
  Transmission Date: 20230113
  Serious: Yes (Other)
  Sender: FDA-Public Use
  Company Number: FR-CELLTRION HEALTHCARE HUNGARY KFT-2022FR013344

PATIENT
  Age: 95 Year
  Sex: Female

DRUGS (11)
  1. RITUXIMAB [Suspect]
     Active Substance: RITUXIMAB
     Indication: Lymphoma
     Dosage: 375 MG/M2 ON DAY 1 COMBINED WITH BENDAMUSTINE ON DAYS 1 AND 2
  2. RITUXIMAB [Suspect]
     Active Substance: RITUXIMAB
     Dosage: 500 MG/M2 MONTHLY (FIRST LINE THERAPY)
  3. RITUXIMAB [Suspect]
     Active Substance: RITUXIMAB
     Dosage: 375 MG/M2 ON DAY 1 (THIRD LINE THERAPY)/ONE REGIMEN OF RITUXIMAB WAS BEING GIVEN ALONE
  4. DARATUMUMAB [Suspect]
     Active Substance: DARATUMUMAB
     Indication: Primary amyloidosis
     Dosage: 16 MG/KG ON DAY 1 (FOURTH LINE THERAPY)
  5. DARATUMUMAB [Suspect]
     Active Substance: DARATUMUMAB
     Dosage: 1800 MG FROM DAY 8 (FOURTH LINE THERAPY)
     Route: 058
  6. DEXAMETHASONE [Suspect]
     Active Substance: DEXAMETHASONE
     Indication: Primary amyloidosis
     Dosage: 100 MG, ON DAYS L, 8, 15 AND 22 (SECOND LINE THERAPY)
     Route: 048
  7. CYCLOPHOSPHAMIDE [Suspect]
     Active Substance: CYCLOPHOSPHAMIDE
     Indication: Primary amyloidosis
     Dosage: 100 MG, ON DAYS 1, 8 AND 15 (SECOND LINE THERAPY)
     Route: 048
  8. BORTEZOMIB [Suspect]
     Active Substance: BORTEZOMIB
     Indication: Primary amyloidosis
     Dosage: 1 MG/M2, ON DAYS 1, 8, 15 AND 22 (SECOND LINE THERAPY)
     Route: 058
  9. BENDAMUSTINE [Suspect]
     Active Substance: BENDAMUSTINE
     Indication: Primary amyloidosis
     Dosage: 50 MG/M2 ON DAYS 1 AND 2 WITH RITUXIMAB (THIRD LINE THERAPY)
  10. BENDAMUSTINE [Suspect]
     Active Substance: BENDAMUSTINE
     Indication: Lymphoplasmacytoid lymphoma/immunocytoma
  11. SARS-COV-2 VACCINE [Concomitant]
     Indication: COVID-19 immunisation
     Dosage: UNK

REACTIONS (8)
  - Acute kidney injury [Unknown]
  - Erysipelas [Unknown]
  - Cardiac failure congestive [Unknown]
  - Atrial fibrillation [Unknown]
  - Neutropenia [Unknown]
  - Gout [Unknown]
  - Off label use [Unknown]
  - Drug ineffective for unapproved indication [Unknown]
